FAERS Safety Report 22238542 (Version 4)
Quarter: 2024Q2

REPORT INFORMATION
  Report Type: Other
  Country: DE (occurrence: None)
  Receive Date: 20230421
  Receipt Date: 20240604
  Transmission Date: 20240716
  Serious: Yes (Other)
  Sender: FDA-Public Use
  Company Number: DE-ROCHE-3242996

PATIENT
  Age: 32 Year
  Sex: Female

DRUGS (17)
  1. OCRELIZUMAB [Suspect]
     Active Substance: OCRELIZUMAB
     Indication: Relapsing multiple sclerosis
     Route: 042
     Dates: start: 20220311
  2. OCRELIZUMAB [Suspect]
     Active Substance: OCRELIZUMAB
     Route: 042
     Dates: start: 20220906
  3. IBUPROFEN [Concomitant]
     Active Substance: IBUPROFEN
     Route: 048
     Dates: start: 20240325, end: 20240330
  4. EBASTINE [Concomitant]
     Active Substance: EBASTINE
     Dosage: TAKEN OVER?3 DAYS,?TWICE A?DAY, START 1?DAY BEFORE?INFUSION
     Route: 048
     Dates: start: 20220310, end: 20220312
  5. EBASTINE [Concomitant]
     Active Substance: EBASTINE
     Route: 048
     Dates: start: 20220324, end: 20220326
  6. EBASTINE [Concomitant]
     Active Substance: EBASTINE
     Dosage: 2 TIMES A?DAY FOR 3?DAYS, START?1 DAY?BEFORE?INFUSION
     Route: 048
     Dates: start: 20220905, end: 20220907
  7. EBASTINE [Concomitant]
     Active Substance: EBASTINE
     Dosage: 2 TIMES A?DAY FOR 3?DAYS, START?1 DAY?BEFORE?INFUSION
     Route: 048
     Dates: start: 20230402, end: 20230404
  8. EBASTINE [Concomitant]
     Active Substance: EBASTINE
     Dosage: 2 TIMES A?DAY FOR 3?DAYS, START?1 DAY?BEFORE?INFUSION
     Route: 048
     Dates: start: 20231003, end: 20231005
  9. PREDNISOLONE [Concomitant]
     Active Substance: PREDNISOLONE
     Route: 042
     Dates: start: 20220311, end: 20220311
  10. PREDNISOLONE [Concomitant]
     Active Substance: PREDNISOLONE
     Route: 042
     Dates: start: 20220325, end: 20220325
  11. PREDNISOLONE [Concomitant]
     Active Substance: PREDNISOLONE
     Route: 042
     Dates: start: 20220906, end: 20220906
  12. PREDNISOLONE [Concomitant]
     Active Substance: PREDNISOLONE
     Route: 042
     Dates: start: 20230403, end: 20230403
  13. PREDNISOLONE [Concomitant]
     Active Substance: PREDNISOLONE
     Route: 042
     Dates: start: 20231004, end: 20231004
  14. CORTISONE [Concomitant]
     Active Substance: CORTISONE
     Dosage: DOSE: UN?DOSE FREQUENCY: UNKNOWN
     Route: 001
     Dates: start: 20230325, end: 20230330
  15. FOLIC ACID [Concomitant]
     Active Substance: FOLIC ACID
     Indication: Folate deficiency
     Dosage: DOSE: UN?DOSE FREQUENCY: UNKNOWN
     Route: 048
     Dates: start: 20230315
  16. MAGNESIUM [Concomitant]
     Active Substance: MAGNESIUM
     Indication: Prophylaxis
     Route: 048
     Dates: start: 202109
  17. CHOLECALCIFEROL [Concomitant]
     Active Substance: CHOLECALCIFEROL
     Indication: Prophylaxis
     Route: 048
     Dates: start: 20170418

REACTIONS (5)
  - Blood immunoglobulin M decreased [Unknown]
  - Neutropenia [Recovered/Resolved]
  - C-reactive protein increased [Recovered/Resolved]
  - White blood cell count increased [Recovered/Resolved]
  - Neutropenia [Recovered/Resolved]

NARRATIVE: CASE EVENT DATE: 20221207
